FAERS Safety Report 9324294 (Version 1)
Quarter: 2013Q2

REPORT INFORMATION
  Report Type: Spontaneous
  Country: ES (occurrence: ES)
  Receive Date: 20130603
  Receipt Date: 20130603
  Transmission Date: 20140414
  Serious: Yes (Other)
  Sender: FDA-Public Use
  Company Number: ES-ASTRAZENECA-2013SE37632

PATIENT
  Age: 30 Year
  Sex: Male

DRUGS (1)
  1. SYMBICORT FORTE TBH [Suspect]
     Indication: ASTHMA
     Dosage: UNKNOWN STRENGTH, 1 DF TWO TIMES A DAY
     Route: 055
     Dates: start: 2013, end: 20130510

REACTIONS (3)
  - Generalised oedema [Unknown]
  - Rhabdomyolysis [Unknown]
  - Pain [Unknown]
